FAERS Safety Report 4800243-9 (Version None)
Quarter: 2005Q4

REPORT INFORMATION
  Report Type: 
  Country: None (occurrence: None)
  Receive Date: 20051017
  Receipt Date: 20041014
  Transmission Date: 20060501
  Serious: No
  Sender: FDA-Public Use
  Company Number: US-GLAXOSMITHKLINE-A0529925A

PATIENT
  Sex: Female

DRUGS (3)
  1. CEFTIN [Suspect]
     Indication: OTITIS MEDIA ACUTE
     Route: 048
     Dates: start: 20041005
  2. ACCUHIST LA [Concomitant]
  3. ZYRTEC [Concomitant]

REACTIONS (1)
  - DRUG INEFFECTIVE [None]
